FAERS Safety Report 7184027-5 (Version None)
Quarter: 2010Q4

REPORT INFORMATION
  Report Type: 
  Country: None (occurrence: None)
  Receive Date: 20101222
  Receipt Date: 20101209
  Transmission Date: 20110411
  Serious: Yes (Hospitalization, Other)
  Sender: FDA-Public Use
  Company Number: US-CELGENEUS-163-20785-10112529

PATIENT
  Sex: Male

DRUGS (12)
  1. THALOMID [Suspect]
     Route: 048
     Dates: start: 20070601, end: 20070101
  2. THALOMID [Suspect]
     Dosage: 150-100MG
     Route: 048
     Dates: start: 20070701, end: 20090101
  3. THALOMID [Suspect]
     Route: 048
     Dates: start: 20090507, end: 20090101
  4. THALOMID [Suspect]
     Dosage: 200-100MG
     Route: 048
     Dates: start: 20090701, end: 20090101
  5. THALOMID [Suspect]
     Route: 048
     Dates: start: 20091201
  6. THALOMID [Suspect]
     Route: 048
     Dates: start: 20100101
  7. ALLOPURINOL [Concomitant]
     Route: 065
  8. ATENOLOL [Concomitant]
     Route: 065
  9. COUMADIN [Concomitant]
     Route: 065
  10. DIGITEK [Concomitant]
     Route: 065
  11. FOLIC ACID [Concomitant]
     Route: 065
  12. GLIPIZIDE [Concomitant]
     Route: 065

REACTIONS (8)
  - BLOOD GLUCOSE INCREASED [None]
  - HYPERNATRAEMIA [None]
  - HYPOGLYCAEMIA [None]
  - HYPOTENSION [None]
  - ISCHAEMIC STROKE [None]
  - PNEUMONIA BACTERIAL [None]
  - RESPIRATORY DISTRESS [None]
  - URINARY TRACT INFECTION STAPHYLOCOCCAL [None]
